FAERS Safety Report 20527242 (Version 5)
Quarter: 2022Q2

REPORT INFORMATION
  Report Type: Report from Study
  Country: CO (occurrence: CO)
  Receive Date: 20220228
  Receipt Date: 20220418
  Transmission Date: 20220721
  Serious: Yes (Other)
  Sender: FDA-Public Use
  Company Number: CO-NOVARTISPH-NVSC2022CO046202

PATIENT
  Sex: Female
  Weight: 50 kg

DRUGS (7)
  1. KISQALI [Suspect]
     Active Substance: RIBOCICLIB
     Indication: Hormone receptor positive HER2 negative breast cancer
     Dosage: 600 MG QD (3 OF 200 MG)
     Route: 048
     Dates: start: 202103
  2. KISQALI [Suspect]
     Active Substance: RIBOCICLIB
     Dosage: 400 MG QD (2 OF 200 MG)
     Route: 048
  3. KISQALI [Suspect]
     Active Substance: RIBOCICLIB
     Dosage: UNK, QD
     Route: 048
     Dates: start: 202201
  4. KISQALI [Suspect]
     Active Substance: RIBOCICLIB
     Dosage: 400 MG, QD
     Route: 048
     Dates: start: 20220405
  5. FEMARA [Suspect]
     Active Substance: LETROZOLE
     Indication: Breast cancer
     Dosage: 2.5 MG, QD
     Route: 048
     Dates: start: 202103
  6. FEMARA [Suspect]
     Active Substance: LETROZOLE
     Dosage: 2.5 MG, QD
     Route: 048
     Dates: start: 20220405
  7. CALCIUM [Concomitant]
     Active Substance: CALCIUM
     Indication: Product used for unknown indication
     Dosage: UNK
     Route: 065

REACTIONS (21)
  - Blindness [Unknown]
  - Pain [Unknown]
  - Bone pain [Unknown]
  - Back pain [Unknown]
  - Affective disorder [Unknown]
  - Depression [Unknown]
  - Oral pain [Unknown]
  - Blister [Recovered/Resolved]
  - Ulcer [Unknown]
  - Skin discolouration [Unknown]
  - Rash [Recovered/Resolved]
  - Illness [Unknown]
  - Memory impairment [Unknown]
  - Dysstasia [Unknown]
  - Feeling abnormal [Unknown]
  - Pain in extremity [Unknown]
  - Arthralgia [Unknown]
  - Fall [Unknown]
  - Dizziness [Unknown]
  - Anxiety [Unknown]
  - Incorrect dose administered [Unknown]
